FAERS Safety Report 12354896 (Version 5)
Quarter: 2017Q4

REPORT INFORMATION
  Report Type: Spontaneous
  Country: CA (occurrence: CA)
  Receive Date: 20160511
  Receipt Date: 20171103
  Transmission Date: 20180320
  Serious: Yes (Hospitalization, Other)
  Sender: FDA-Public Use
  Company Number: CA-ROCHE-1755579

PATIENT
  Age: 16 Year
  Sex: Female

DRUGS (2)
  1. XOLAIR [Suspect]
     Active Substance: OMALIZUMAB
     Indication: ASTHMA
     Route: 058
     Dates: start: 20070410
  2. XOLAIR [Suspect]
     Active Substance: OMALIZUMAB
     Route: 058
     Dates: start: 2017

REACTIONS (7)
  - Lung infection [Unknown]
  - Superinfection [Unknown]
  - Secretion discharge [Unknown]
  - Aspergillus infection [Not Recovered/Not Resolved]
  - Cystic fibrosis [Unknown]
  - Cough [Unknown]
  - Respiratory tract infection [Not Recovered/Not Resolved]

NARRATIVE: CASE EVENT DATE: 20161206
